FAERS Safety Report 5603738-3 (Version None)
Quarter: 2008Q1

REPORT INFORMATION
  Report Type: 
  Country: None (occurrence: None)
  Receive Date: 20080128
  Receipt Date: 20071115
  Transmission Date: 20080703
  Serious: No
  Sender: FDA-Public Use
  Company Number: US-BAYER-US-2007-043474

PATIENT
  Age: 48 Year
  Sex: Female
  Weight: 70 kg

DRUGS (2)
  1. ANGELIQ [Suspect]
     Indication: MENOPAUSAL SYMPTOMS PROPHYLAXIS
     Route: 048
     Dates: start: 20071022, end: 20071115
  2. LEXAPRO [Concomitant]
     Route: 048

REACTIONS (2)
  - TOOTHACHE [None]
  - VAGINAL HAEMORRHAGE [None]
